FAERS Safety Report 6496696-3 (Version None)
Quarter: 2009Q4

REPORT INFORMATION
  Report Type: 
  Country: None (occurrence: None)
  Receive Date: 20091210
  Receipt Date: 20091202
  Transmission Date: 20100525
  Serious: Yes (Hospitalization)
  Sender: FDA-Public Use
  Company Number: GB-EBEWE-1856DOXORUBFLUORO09

PATIENT
  Age: 66 Year
  Sex: Female

DRUGS (2)
  1. FLUOROURACIL [Suspect]
     Dosage: 850 MG, IV
     Route: 042
     Dates: start: 20090319
  2. DOXORUBICIN HCL [Suspect]
     Dosage: 85 MG, IV
     Route: 042
     Dates: start: 20090319

REACTIONS (3)
  - FEBRILE NEUTROPENIA [None]
  - MALAISE [None]
  - NERVOUSNESS [None]
